FAERS Safety Report 12230924 (Version 7)
Quarter: 2016Q2

REPORT INFORMATION
  Report Type: Report from Study
  Country: US (occurrence: US)
  Receive Date: 20160401
  Receipt Date: 20160617
  Transmission Date: 20160815
  Serious: Yes (Other)
  Sender: FDA-Public Use
  Company Number: US-BAYER-2016-054995

PATIENT
  Age: 65 Year
  Sex: Female
  Weight: 105.67 kg

DRUGS (9)
  1. ADEMPAS [Suspect]
     Active Substance: RIOCIGUAT
     Indication: PULMONARY ARTERIAL HYPERTENSION
     Dosage: 0.5 MG, TID
     Route: 048
     Dates: start: 20160415
  2. ADEMPAS [Suspect]
     Active Substance: RIOCIGUAT
     Indication: PULMONARY ARTERIAL HYPERTENSION
     Dosage: 1 MG, TID
  3. ADEMPAS [Suspect]
     Active Substance: RIOCIGUAT
     Indication: PULMONARY ARTERIAL HYPERTENSION
     Dosage: 1 MG, TID
     Route: 048
  4. TREPROSTINIL [Suspect]
     Active Substance: TREPROSTINIL
     Indication: PULMONARY ARTERIAL HYPERTENSION
     Dosage: 8.75 MG, TID
     Route: 048
     Dates: start: 20150122
  5. ADEMPAS [Suspect]
     Active Substance: RIOCIGUAT
     Indication: PULMONARY ARTERIAL HYPERTENSION
     Dosage: UNK
     Dates: start: 20160229
  6. TRACLEER [Concomitant]
     Active Substance: BOSENTAN
     Dosage: 125 MG, UNK
  7. ADEMPAS [Suspect]
     Active Substance: RIOCIGUAT
     Indication: PULMONARY ARTERIAL HYPERTENSION
     Dosage: UNK
     Dates: start: 20160328
  8. COUMADIN [Concomitant]
     Active Substance: WARFARIN SODIUM
  9. ADEMPAS [Suspect]
     Active Substance: RIOCIGUAT
     Indication: PULMONARY ARTERIAL HYPERTENSION
     Dosage: 1 MG, TID
     Route: 048

REACTIONS (16)
  - Ankle fracture [Unknown]
  - Palpitations [Unknown]
  - Blood pressure diastolic decreased [Unknown]
  - Lip injury [Unknown]
  - Hypotension [Unknown]
  - Syncope [Unknown]
  - Accident [Unknown]
  - Blood pressure diastolic decreased [Unknown]
  - Loss of consciousness [None]
  - Blood pressure decreased [None]
  - Foot fracture [Unknown]
  - Adverse drug reaction [Unknown]
  - Blood pressure decreased [Unknown]
  - Dizziness [Unknown]
  - Anxiety [None]
  - Heart rate increased [None]

NARRATIVE: CASE EVENT DATE: 2016
